FAERS Safety Report 23498464 (Version 2)
Quarter: 2024Q1

REPORT INFORMATION
  Report Type: Report from Study
  Country: US (occurrence: US)
  Receive Date: 20240207
  Receipt Date: 20240304
  Transmission Date: 20240410
  Serious: Yes (Hospitalization)
  Sender: FDA-Public Use
  Company Number: US-ABBVIE-5585204

PATIENT
  Age: 71 Year
  Sex: Female

DRUGS (2)
  1. HUMIRA [Suspect]
     Active Substance: ADALIMUMAB
     Indication: Colitis ulcerative
     Dosage: FORM STRENGTH: 40MG,?LAST ADMIN DATE: 2023?CITRATE FREE
     Route: 058
     Dates: start: 20230525
  2. HUMIRA [Suspect]
     Active Substance: ADALIMUMAB
     Dosage: FORM STRENGTH: 40MG?CITRATE FREE
     Route: 058
     Dates: start: 20230609

REACTIONS (9)
  - Malaise [Unknown]
  - Influenza [Recovering/Resolving]
  - Injection site reaction [Recovering/Resolving]
  - Peripheral swelling [Unknown]
  - Dyspnoea [Recovering/Resolving]
  - Pain [Recovering/Resolving]
  - Pain in extremity [Unknown]
  - Joint swelling [Unknown]
  - Discomfort [Unknown]

NARRATIVE: CASE EVENT DATE: 20231231
